FAERS Safety Report 4492682-3 (Version None)
Quarter: 2004Q4

REPORT INFORMATION
  Report Type: 
  Country: None (occurrence: None)
  Receive Date: 20041029
  Receipt Date: 20041018
  Transmission Date: 20050328
  Serious: Yes (Other)
  Sender: FDA-Public Use
  Company Number: 2004079412

PATIENT
  Sex: Female
  Weight: 27 kg

DRUGS (2)
  1. ETHOSUXIMIDE [Suspect]
     Indication: EPILEPSY
     Dosage: SEE IMAGE
     Route: 048
     Dates: start: 19990401, end: 20041001
  2. ETHOSUXIMIDE [Suspect]
     Indication: EPILEPSY
     Dosage: SEE IMAGE
     Route: 048
     Dates: start: 20040101, end: 20041001

REACTIONS (4)
  - EPIPHYSES DELAYED FUSION [None]
  - FAILURE TO THRIVE [None]
  - GROWTH RETARDATION [None]
  - WEIGHT DECREASED [None]
